FAERS Safety Report 8469133 (Version 4)
Quarter: 2014Q3

REPORT INFORMATION
  Report Type: Report from Study
  Country: JP (occurrence: JP)
  Receive Date: 20120321
  Receipt Date: 20140808
  Transmission Date: 20150326
  Serious: Yes (Death)
  Sender: FDA-Public Use
  Company Number: JP-AMGEN-JPNCT2012017321

PATIENT
  Age: 67 Year
  Sex: Male
  Weight: 40 kg

DRUGS (7)
  1. MINOMYCIN [Suspect]
     Active Substance: MINOCYCLINE HYDROCHLORIDE
     Indication: RASH
     Dosage: 50 MG, BID
     Route: 048
     Dates: start: 20111026, end: 20120306
  2. ALOXI [Concomitant]
     Active Substance: PALONOSETRON HYDROCHLORIDE
     Indication: COLORECTAL CANCER
     Dosage: 0.75 MG, Q2WEEKS
     Route: 041
     Dates: start: 20111026, end: 20120222
  3. PANITUMUMAB [Suspect]
     Active Substance: PANITUMUMAB
     Indication: COLORECTAL CANCER
     Dosage: 300 MG, Q2WEEKS
     Route: 041
     Dates: start: 20111026, end: 20120222
  4. ELPLAT [Suspect]
     Active Substance: OXALIPLATIN
     Indication: COLORECTAL CANCER
     Dosage: 125 MG, Q2WEEKS
     Route: 041
     Dates: start: 20111026, end: 20120222
  5. DECADRON                           /00016002/ [Concomitant]
     Active Substance: DEXAMETHASONE
     Indication: COLORECTAL CANCER
     Dosage: 6.6 MG, Q2WEEKS
     Route: 041
     Dates: start: 20111026, end: 20120222
  6. FLUOROURACIL. [Suspect]
     Active Substance: FLUOROURACIL
     Indication: COLORECTAL CANCER
     Dosage: 4075 MG, Q2WEEKS
     Route: 041
     Dates: start: 20111026, end: 20120222
  7. LEVOFOLINATE [Concomitant]
     Active Substance: LEVOLEUCOVORIN CALCIUM
     Indication: COLORECTAL CANCER
     Dosage: 290 MG, Q2WEEKS
     Route: 041
     Dates: start: 20111026, end: 20120222

REACTIONS (1)
  - Interstitial lung disease [Fatal]

NARRATIVE: CASE EVENT DATE: 20120226
